FAERS Safety Report 16539486 (Version 1)
Quarter: 2019Q3

REPORT INFORMATION
  Report Type: Spontaneous
  Country: US (occurrence: US)
  Receive Date: 20190708
  Receipt Date: 20190708
  Transmission Date: 20191004
  Serious: No
  Sender: FDA-Public Use
  Company Number: US-STRONGBRIDGE BIOPHARMA-2019-STR-000178

PATIENT
  Sex: Male

DRUGS (1)
  1. KEVEYIS [Suspect]
     Active Substance: DICHLORPHENAMIDE
     Indication: PRODUCT USED FOR UNKNOWN INDICATION
     Dosage: 50 MG, BID
     Route: 048
     Dates: start: 20170714

REACTIONS (6)
  - Fatigue [Unknown]
  - Dysgeusia [Unknown]
  - Burning sensation [Unknown]
  - Paraesthesia [Unknown]
  - Myalgia [Unknown]
  - Hypothyroidism [Unknown]
